FAERS Safety Report 9380600 (Version 1)
Quarter: 2013Q2

REPORT INFORMATION
  Report Type: Spontaneous
  Country: US (occurrence: None)
  Receive Date: 20130628
  Receipt Date: 20130628
  Transmission Date: 20140414
  Serious: Yes (Other)
  Sender: FDA-Public Use
  Company Number: USA/USA/13/0030179

PATIENT
  Age: 24 Year
  Sex: Male
  Weight: 75.75 kg

DRUGS (9)
  1. RISPERIDONE (RISPERIDONE) [Suspect]
     Indication: PSYCHOTIC DISORDER
     Dosage: STOPPED
  2. LAMOTRIGINE [Suspect]
     Indication: DEPRESSION
  3. SERTRALINE (SERTRALINE) (SERTRALINE) [Suspect]
     Indication: PRODUCT USED FOR UNKNOWN INDICATION
  4. QUETIAPINE XR [Suspect]
     Indication: PSYCHOTIC DISORDER
  5. ACETYLCYSTEINE [Suspect]
     Indication: PRODUCT USED FOR UNKNOWN INDICATION
     Dosage: STOPPED
  6. GABAPENTIN (GABAPENTIN) [Suspect]
     Indication: PRODUCT USED FOR UNKNOWN INDICATION
     Dosage: STOPPED
  7. ESZOPICLONE [Suspect]
     Indication: PRODUCT USED FOR UNKNOWN INDICATION
     Dosage: STOPPED
  8. CALCIUM POLYCARBOPHIL [Suspect]
     Indication: PRODUCT USED FOR UNKNOWN INDICATION
     Dosage: STOPPED?
  9. DOCUSATE (DOCUSATE) [Suspect]
     Indication: PRODUCT USED FOR UNKNOWN INDICATION
     Dosage: STOPPED

REACTIONS (21)
  - Anxiety [None]
  - Restlessness [None]
  - Musculoskeletal stiffness [None]
  - Constipation [None]
  - Weight increased [None]
  - Malaise [None]
  - Hypomania [None]
  - Drug ineffective [None]
  - Ideas of reference [None]
  - Obsessive-compulsive disorder [None]
  - Depressed mood [None]
  - Asthenia [None]
  - Insomnia [None]
  - Suicidal ideation [None]
  - Increased appetite [None]
  - Crying [None]
  - Feeling guilty [None]
  - Malaise [None]
  - Somatoform disorder [None]
  - Paranoia [None]
  - Alcohol use [None]
